FAERS Safety Report 6212875-4 (Version None)
Quarter: 2009Q2

REPORT INFORMATION
  Report Type: 
  Country: None (occurrence: None)
  Receive Date: 20090603
  Receipt Date: 20090601
  Transmission Date: 20091009
  Serious: Yes (Death)
  Sender: FDA-Public Use
  Company Number: PHHY2009BR21364

PATIENT
  Sex: Female

DRUGS (7)
  1. DIOVAN [Suspect]
     Indication: BLOOD PRESSURE INADEQUATELY CONTROLLED
     Dosage: 160 MG, QD
     Route: 048
  2. INSULIN [Concomitant]
     Indication: DIABETES MELLITUS
     Dosage: UNK
     Dates: start: 19990101
  3. METFORMIN HCL [Concomitant]
     Indication: DIABETES MELLITUS
     Route: 048
  4. VIVACOR [Concomitant]
     Indication: BLOOD CHOLESTEROL ABNORMAL
     Dosage: 1 TABLET A DAY
     Route: 048
  5. OMEPRAZOLE [Concomitant]
     Indication: GASTRIC DISORDER
     Dosage: 1 TABLET A DAY
     Route: 048
  6. POLYCARBOPHIL CALCIUM [Concomitant]
     Indication: GASTROINTESTINAL DISORDER
     Dosage: 1 TABLET A DAY
     Route: 048
  7. ARCALION [Concomitant]
     Indication: MEMORY IMPAIRMENT
     Dosage: 2 TABLETS A DAY
     Route: 048
     Dates: start: 20080101

REACTIONS (1)
  - INFARCTION [None]
